FAERS Safety Report 13293919 (Version 1)
Quarter: 2017Q1

REPORT INFORMATION
  Report Type: Spontaneous
  Country: US (occurrence: US)
  Receive Date: 20170303
  Receipt Date: 20170303
  Transmission Date: 20170428
  Serious: Yes (Other)
  Sender: FDA-Public Use
  Company Number: US-TEVA-744649USA

PATIENT
  Age: 46 Year
  Sex: Female
  Weight: 55 kg

DRUGS (5)
  1. BACTRIM [Concomitant]
     Active Substance: SULFAMETHOXAZOLE\TRIMETHOPRIM
     Indication: PROPHYLAXIS
  2. MULTIVITAMINS [Concomitant]
     Active Substance: VITAMINS
  3. TRISENOX [Suspect]
     Active Substance: ARSENIC TRIOXIDE
     Indication: ACUTE PROMYELOCYTIC LEUKAEMIA
     Route: 042
     Dates: start: 20170128
  4. PREDNISONE. [Concomitant]
     Active Substance: PREDNISONE
  5. TRETINOIN. [Concomitant]
     Active Substance: TRETINOIN

REACTIONS (5)
  - Cyanosis [Unknown]
  - Palpitations [Unknown]
  - Respiratory distress [Recovered/Resolved]
  - Methaemoglobinaemia [Not Recovered/Not Resolved]
  - Oxygen saturation decreased [Unknown]

NARRATIVE: CASE EVENT DATE: 20170222
